FAERS Safety Report 9753895 (Version 2)
Quarter: 2013Q4

REPORT INFORMATION
  Report Type: Spontaneous
  Country: US (occurrence: US)
  Receive Date: 20131213
  Receipt Date: 20131213
  Transmission Date: 20140711
  Serious: Yes (Other)
  Sender: FDA-Public Use
  Company Number: US-GILEAD-2010-0027651

PATIENT
  Age: 82 Year
  Sex: Female
  Weight: 75.75 kg

DRUGS (16)
  1. LETAIRIS [Suspect]
     Indication: PULMONARY ARTERIAL HYPERTENSION
     Route: 048
     Dates: start: 20090529, end: 20100304
  2. REVATIO [Concomitant]
  3. CARDIZEM [Concomitant]
  4. BYSTOLIC [Concomitant]
  5. LIPITOR [Concomitant]
  6. LASIX [Concomitant]
  7. COUMADIN [Concomitant]
  8. GEMFIBROZIL [Concomitant]
  9. JANUVIA [Concomitant]
  10. METFORMIN [Concomitant]
  11. GLYBURIDE [Concomitant]
  12. LEXAPRO [Concomitant]
  13. SYNTHROID [Concomitant]
  14. PRILOSEC [Concomitant]
  15. K-DUR [Concomitant]
  16. CALCIUM +D [Concomitant]

REACTIONS (2)
  - No therapeutic response [Unknown]
  - Face oedema [Recovered/Resolved]
